FAERS Safety Report 6153556-5 (Version None)
Quarter: 2009Q2

REPORT INFORMATION
  Report Type: 
  Country: None (occurrence: None)
  Receive Date: 20090409
  Receipt Date: 20090409
  Transmission Date: 20091009
  Serious: No
  Sender: FDA-Public Use
  Company Number: None

PATIENT
  Sex: Male
  Weight: 65.7716 kg

DRUGS (1)
  1. ACCUTANE [Suspect]
     Indication: ACNE
     Dosage: ONE PILL DAILY PO
     Route: 048
     Dates: start: 20080315, end: 20080815

REACTIONS (8)
  - ABNORMAL BEHAVIOUR [None]
  - AGGRESSION [None]
  - DRUG ABUSE [None]
  - FEELING ABNORMAL [None]
  - INSOMNIA [None]
  - LEGAL PROBLEM [None]
  - PERSONALITY CHANGE [None]
  - THEFT [None]
